FAERS Safety Report 8006954-9 (Version None)
Quarter: 2011Q4

REPORT INFORMATION
  Report Type: 
  Country: None (occurrence: None)
  Receive Date: 20111201
  Receipt Date: 20111115
  Transmission Date: 20120403
  Serious: Yes (Hospitalization)
  Sender: FDA-Public Use
  Company Number: 2011MZ000061

PATIENT
  Age: 56 Year
  Sex: Male
  Weight: 82 kg

DRUGS (9)
  1. SELEGILIN [Concomitant]
  2. NOVORAPID [Concomitant]
  3. BOTULINUM TOXIN TYPE A [Suspect]
     Indication: NEUROGENIC BLADDER
     Dosage: 300 IU; X1
     Dates: start: 20111109, end: 20111109
  4. SINEMET [Concomitant]
  5. HYDROCHLOROTHIAZIDE W/RAMIPRIL [Concomitant]
  6. OMEPRAZOLE [Concomitant]
  7. CABERGOLINE [Concomitant]
  8. MAGNESIUM [Concomitant]
  9. PROTAPHANE [Concomitant]

REACTIONS (3)
  - DELAYED RECOVERY FROM ANAESTHESIA [None]
  - SOMNOLENCE [None]
  - UNRESPONSIVE TO STIMULI [None]
